FAERS Safety Report 5144839-6 (Version None)
Quarter: 2006Q4

REPORT INFORMATION
  Report Type: 
  Country: None (occurrence: None)
  Receive Date: 20061107
  Receipt Date: 20061101
  Transmission Date: 20070319
  Serious: Yes (Death)
  Sender: FDA-Public Use
  Company Number: US-BRISTOL-MYERS SQUIBB COMPANY-13563556

PATIENT

DRUGS (1)
  1. PARAPLATIN [Suspect]
     Route: 042

REACTIONS (1)
  - DEATH [None]
